FAERS Safety Report 5794725-3 (Version None)
Quarter: 2008Q2

REPORT INFORMATION
  Report Type: 
  Country: None (occurrence: None)
  Receive Date: 20080626
  Receipt Date: 20080611
  Transmission Date: 20081010
  Serious: Yes (Other)
  Sender: FDA-Public Use
  Company Number: JPI-P-002606

PATIENT
  Age: 64 Year
  Sex: Male

DRUGS (8)
  1. XYREM [Suspect]
     Indication: CATAPLEXY
     Dosage: 4.5 GM (2.25 GM, 2 IN 1 D), ORAL; 3 GM (3 GM, 2 IN 1 D), ORAL; 2.25 GM (2.25 GM, 2 IN 1 D), ORAL
     Route: 048
     Dates: start: 20071004, end: 20071222
  2. XYREM [Suspect]
     Indication: NARCOLEPSY
     Dosage: 4.5 GM (2.25 GM, 2 IN 1 D), ORAL; 3 GM (3 GM, 2 IN 1 D), ORAL; 2.25 GM (2.25 GM, 2 IN 1 D), ORAL
     Route: 048
     Dates: start: 20071004, end: 20071222
  3. XYREM [Suspect]
     Indication: CATAPLEXY
     Dosage: 4.5 GM (2.25 GM, 2 IN 1 D), ORAL; 3 GM (3 GM, 2 IN 1 D), ORAL; 2.25 GM (2.25 GM, 2 IN 1 D), ORAL
     Route: 048
     Dates: start: 20071223
  4. XYREM [Suspect]
     Indication: NARCOLEPSY
     Dosage: 4.5 GM (2.25 GM, 2 IN 1 D), ORAL; 3 GM (3 GM, 2 IN 1 D), ORAL; 2.25 GM (2.25 GM, 2 IN 1 D), ORAL
     Route: 048
     Dates: start: 20071223
  5. XYREM [Suspect]
     Indication: CATAPLEXY
     Dosage: 4.5 GM (2.25 GM, 2 IN 1 D), ORAL; 3 GM (3 GM, 2 IN 1 D), ORAL; 2.25 GM (2.25 GM, 2 IN 1 D), ORAL
     Route: 048
     Dates: start: 20071223
  6. XYREM [Suspect]
     Indication: NARCOLEPSY
     Dosage: 4.5 GM (2.25 GM, 2 IN 1 D), ORAL; 3 GM (3 GM, 2 IN 1 D), ORAL; 2.25 GM (2.25 GM, 2 IN 1 D), ORAL
     Route: 048
     Dates: start: 20071223
  7. MODAFINIL [Concomitant]
  8. CLOMIPRAMINE HCL [Concomitant]

REACTIONS (6)
  - HEADACHE [None]
  - HYPNAGOGIC HALLUCINATION [None]
  - MACULAR DEGENERATION [None]
  - MUSCLE SPASMS [None]
  - NIGHTMARE [None]
  - SLEEP PARALYSIS [None]
